FAERS Safety Report 5326728-7 (Version None)
Quarter: 2007Q2

REPORT INFORMATION
  Report Type: 
  Country: None (occurrence: None)
  Receive Date: 20070516
  Receipt Date: 20070503
  Transmission Date: 20071010
  Serious: Yes (Death, Hospitalization)
  Sender: FDA-Public Use
  Company Number: US-SHR-US-2007-016311

PATIENT

DRUGS (3)
  1. CYCLOPHOSPHAMIDE [Suspect]
     Dosage: 50 MG/KG DAY -6 ONE DOSE
     Route: 042
  2. DONOR LYMPHOCYTE INFUSION (DLI) [Suspect]
     Dosage: 48 HRS AFTER LAST FLU DOSE
     Route: 042
  3. FLUDARA 50 MG (SH L 573 A) [Suspect]
     Dosage: 25 MG/M2 DAYS -6 TO -2

REACTIONS (3)
  - GRAFT VERSUS HOST DISEASE [None]
  - LYMPHOPENIA [None]
  - NEUTROPENIA [None]
